FAERS Safety Report 9912140 (Version 3)
Quarter: 2014Q1

REPORT INFORMATION
  Report Type: Report from Study
  Country: DE (occurrence: DE)
  Receive Date: 20140220
  Receipt Date: 20140311
  Transmission Date: 20141002
  Serious: Yes (Hospitalization)
  Sender: FDA-Public Use
  Company Number: DE-BRISTOL-MYERS SQUIBB COMPANY-20117073

PATIENT
  Age: 67 Year
  Sex: Female

DRUGS (4)
  1. BLINDED: IPILIMUMAB [Suspect]
     Indication: SMALL CELL LUNG CANCER
     Route: 042
     Dates: start: 20130912, end: 20131129
  2. CARBOPLATIN [Suspect]
     Indication: SMALL CELL LUNG CANCER
     Dosage: 1 DF = AUC 5
     Route: 042
     Dates: start: 20130801, end: 20131017
  3. ETOPOSIDE [Suspect]
     Indication: SMALL CELL LUNG CANCER
     Dosage: 100 ?
     Route: 042
     Dates: start: 20130801, end: 20131017
  4. BLINDED: PLACEBO [Suspect]
     Indication: SMALL CELL LUNG CANCER
     Route: 042
     Dates: start: 20130912, end: 20131129

REACTIONS (3)
  - Dyspnoea [Unknown]
  - Interstitial lung disease [Unknown]
  - Atypical pneumonia [Recovered/Resolved with Sequelae]
